FAERS Safety Report 26009438 (Version 1)
Quarter: 2025Q4

REPORT INFORMATION
  Report Type: Spontaneous
  Country: US (occurrence: US)
  Receive Date: 20251107
  Receipt Date: 20251107
  Transmission Date: 20260118
  Serious: No
  Sender: NOVARTIS
  Company Number: US-002147023-NVSC2025US171614

PATIENT
  Sex: Male

DRUGS (1)
  1. PLUVICTO [Suspect]
     Active Substance: LUTETIUM LU-177 VIPIVOTIDE TETRAXETAN
     Indication: Product used for unknown indication
     Dosage: 200 MCI (OTHER, AS PER THE PACKAGE INSERT,  200 MCI^S EVERY 6 WEEKS FOR 6 DOSES,)
     Route: 042
     Dates: start: 20251014, end: 20251014

REACTIONS (1)
  - Dyspnoea [Unknown]
